FAERS Safety Report 9127597 (Version 1)
Quarter: 2013Q1

REPORT INFORMATION
  Report Type: Spontaneous
  Country: US (occurrence: US)
  Receive Date: 20130228
  Receipt Date: 20130228
  Transmission Date: 20140127
  Serious: No
  Sender: FDA-Public Use
  Company Number: US-GLAXOSMITHKLINE-A0987209A

PATIENT
  Sex: Male

DRUGS (4)
  1. LAMOTRIGINE [Suspect]
     Indication: EPILEPSY
     Dosage: 50MG TWICE PER DAY
     Route: 048
  2. UNSPECIFIED INGREDIENT [Suspect]
     Indication: AFFECTIVE DISORDER
     Route: 065
  3. GEODON [Concomitant]
  4. VALPROIC ACID [Concomitant]

REACTIONS (2)
  - Drug interaction [Unknown]
  - Anger [Unknown]
